FAERS Safety Report 6216224-7 (Version None)
Quarter: 2009Q2

REPORT INFORMATION
  Report Type: 
  Country: None (occurrence: None)
  Receive Date: 20090605
  Receipt Date: 20090526
  Transmission Date: 20091009
  Serious: Yes (Hospitalization)
  Sender: FDA-Public Use
  Company Number: A0788638A

PATIENT
  Age: 50 Year
  Sex: Male
  Weight: 95.5 kg

DRUGS (11)
  1. AVANDIA [Suspect]
     Dosage: 8MG PER DAY
     Dates: start: 20020101, end: 20070801
  2. SIMVASTATIN [Concomitant]
     Dates: start: 20040101
  3. METFORMIN HYDROCHLORIDE [Concomitant]
  4. GLUCOPHAGE [Concomitant]
  5. PRANDIN [Concomitant]
  6. CLONIDINE [Concomitant]
  7. MULTI-VITAMIN [Concomitant]
  8. ATENOLOL [Concomitant]
  9. HYDROCHLOROTHIAZIDE [Concomitant]
  10. PRAVASTATIN [Concomitant]
  11. ISOSORBIDE [Concomitant]

REACTIONS (6)
  - CEREBROVASCULAR ACCIDENT [None]
  - CORONARY ARTERY DISEASE [None]
  - CORONARY ARTERY OCCLUSION [None]
  - ISCHAEMIA [None]
  - MYOCARDIAL INFARCTION [None]
  - PAIN [None]
